FAERS Safety Report 10199524 (Version 1)
Quarter: 2014Q2

REPORT INFORMATION
  Report Type: Spontaneous
  Country: US (occurrence: None)
  Receive Date: 20140523
  Receipt Date: 20140523
  Transmission Date: 20141212
  Serious: Yes (Other)
  Sender: FDA-Public Use
  Company Number: None

PATIENT
  Age: 76 Year
  Sex: Male
  Weight: 74.84 kg

DRUGS (1)
  1. DICLOFENAC [Suspect]
     Indication: INFLAMMATION
     Dosage: CREAMS, PATCHES FOUR TIMES DAILY APPLIED TO A SURFACE, USUALLY THE SKIN
     Route: 061
     Dates: start: 20120501, end: 20140501

REACTIONS (2)
  - Hypersensitivity [None]
  - Application site rash [None]
